FAERS Safety Report 13904263 (Version 1)
Quarter: 2017Q3

REPORT INFORMATION
  Report Type: Spontaneous
  Country: US (occurrence: None)
  Receive Date: 20170824
  Receipt Date: 20170824
  Transmission Date: 20171127
  Serious: Yes (Hospitalization)
  Sender: FDA-Public Use
  Company Number: None

PATIENT
  Age: 10 Year
  Sex: Male
  Weight: 27.3 kg

DRUGS (4)
  1. METHOTREXATE. [Suspect]
     Active Substance: METHOTREXATE
     Dates: end: 20170727
  2. VINCRISTINE [Suspect]
     Active Substance: VINCRISTINE
     Dates: end: 20170727
  3. DEXAMETHASONE. [Suspect]
     Active Substance: DEXAMETHASONE
     Dates: end: 20170727
  4. MERCAPTOPURINE. [Suspect]
     Active Substance: MERCAPTOPURINE
     Dates: end: 20170807

REACTIONS (8)
  - Neutropenia [None]
  - Blood pressure decreased [None]
  - Poor peripheral circulation [None]
  - Oxygen saturation decreased [None]
  - Pyrexia [None]
  - Device related infection [None]
  - Cholelithiasis [None]
  - Bacterial test positive [None]

NARRATIVE: CASE EVENT DATE: 20170809
